FAERS Safety Report 7477705-1 (Version None)
Quarter: 2011Q2

REPORT INFORMATION
  Report Type: 
  Country: None (occurrence: None)
  Receive Date: 20110513
  Receipt Date: 20110505
  Transmission Date: 20111010
  Serious: Yes (Hospitalization)
  Sender: FDA-Public Use
  Company Number: US-JNJFOC-20110503573

PATIENT
  Age: 13 Year
  Sex: Female
  Weight: 58.97 kg

DRUGS (4)
  1. MOTRIN IB [Suspect]
     Indication: PYREXIA
     Route: 048
  2. MOTRIN IB [Suspect]
     Indication: SINUSITIS
     Route: 048
  3. TEGRETOL [Concomitant]
     Route: 048
  4. ACETAMINOPHEN [Concomitant]
     Indication: HEADACHE

REACTIONS (1)
  - RENAL TUBULAR NECROSIS [None]
